FAERS Safety Report 4316163-2 (Version None)
Quarter: 2004Q1

REPORT INFORMATION
  Report Type: 
  Country: None (occurrence: None)
  Receive Date: 20040312
  Receipt Date: 20040203
  Transmission Date: 20041129
  Serious: Yes (Hospitalization, Other)
  Sender: FDA-Public Use
  Company Number: PHRM2004FR00781

PATIENT
  Age: 67 Year
  Sex: Male
  Weight: 70 kg

DRUGS (4)
  1. LAMISIL [Suspect]
     Indication: INTERTRIGO
     Dosage: 250 MG, QD
     Route: 048
     Dates: start: 20031217, end: 20031227
  2. BIOSTIM [Concomitant]
     Route: 048
  3. FORADIL [Concomitant]
  4. MIFLASONE [Concomitant]

REACTIONS (17)
  - ABDOMINAL PAIN [None]
  - ANOREXIA [None]
  - ARTHRALGIA [None]
  - ASTHENIA [None]
  - BLOOD CREATININE INCREASED [None]
  - DIARRHOEA HAEMORRHAGIC [None]
  - DIVERTICULUM INTESTINAL [None]
  - DUODENAL ULCER [None]
  - HENOCH-SCHONLEIN PURPURA [None]
  - MYALGIA [None]
  - NAUSEA [None]
  - NEPHROTIC SYNDROME [None]
  - OEDEMA PERIPHERAL [None]
  - PROTEINURIA [None]
  - PYREXIA [None]
  - VASCULAR PURPURA [None]
  - VOMITING [None]
